FAERS Safety Report 8190838-X (Version None)
Quarter: 2012Q1

REPORT INFORMATION
  Report Type: 
  Country: None (occurrence: None)
  Receive Date: 20120221
  Receipt Date: 20111031
  Transmission Date: 20120608
  Serious: No
  Sender: FDA-Public Use
  Company Number: 1000025087

PATIENT
  Age: 45 Year
  Sex: Female

DRUGS (3)
  1. XANAX [Concomitant]
  2. VIIBRYD [Suspect]
     Indication: DEPRESSION
     Dosage: 10 MG (10 MG,1 IN 1 D),ORAL,  20 MG (20 MG, 1IN 1 D(.ORAL
     Route: 048
     Dates: start: 20111031
  3. VIIBRYD [Suspect]
     Indication: DEPRESSION
     Dosage: 10 MG (10 MG,1 IN 1 D),ORAL,  20 MG (20 MG, 1IN 1 D(.ORAL
     Route: 048
     Dates: start: 20111024, end: 20111030

REACTIONS (1)
  - INSOMNIA [None]
